FAERS Safety Report 8829377 (Version 1)
Quarter: 2012Q4

REPORT INFORMATION
  Report Type: Spontaneous
  Country: US (occurrence: None)
  Receive Date: 20121005
  Receipt Date: 20121005
  Transmission Date: 20130627
  Serious: Yes (Life-Threatening, Hospitalization)
  Sender: FDA-Public Use
  Company Number: None

PATIENT
  Age: 29 Year
  Sex: Female
  Weight: 61.69 kg

DRUGS (2)
  1. GEODON [Suspect]
     Indication: SEDATION
     Dates: start: 20120904
  2. GEODON [Suspect]
     Indication: RELAXATION
     Dates: start: 20120904

REACTIONS (7)
  - Heart rate decreased [None]
  - Pain [None]
  - Discomfort [None]
  - Movement disorder [None]
  - Loss of consciousness [None]
  - Respiratory disorder [None]
  - Cardiac disorder [None]
